FAERS Safety Report 10067007 (Version 3)
Quarter: 2014Q2

REPORT INFORMATION
  Report Type: Spontaneous
  Country: JP (occurrence: JP)
  Receive Date: 20140409
  Receipt Date: 20140423
  Transmission Date: 20141212
  Serious: Yes (Other)
  Sender: FDA-Public Use
  Company Number: JP-009507513-1404JPN003585

PATIENT
  Age: 43 Year
  Sex: Female
  Weight: 75 kg

DRUGS (2)
  1. MARVELON 28 [Suspect]
     Indication: CONTRACEPTION
     Dosage: DAILY DOSAGE UNKNOWN
     Route: 048
     Dates: start: 201308, end: 201403
  2. TRANSAMIN [Concomitant]
     Indication: PROPHYLAXIS
     Dosage: FORMULATION: POR, DAILY DOSAGE UNKNOWN
     Route: 048

REACTIONS (1)
  - Deep vein thrombosis [Unknown]
